FAERS Safety Report 9914812 (Version 3)
Quarter: 2014Q1

REPORT INFORMATION
  Report Type: Spontaneous
  Country: US (occurrence: US)
  Receive Date: 20140220
  Receipt Date: 20140226
  Transmission Date: 20141002
  Serious: Yes (Death)
  Sender: FDA-Public Use
  Company Number: US-009507513-1402USA008505

PATIENT
  Sex: Male

DRUGS (1)
  1. ISENTRESS [Suspect]
     Route: 048

REACTIONS (1)
  - Death [Fatal]
